FAERS Safety Report 4336250-2 (Version None)
Quarter: 2004Q2

REPORT INFORMATION
  Report Type: 
  Country: None (occurrence: None)
  Receive Date: 20040407
  Receipt Date: 20040329
  Transmission Date: 20050107
  Serious: Yes (Hospitalization)
  Sender: FDA-Public Use
  Company Number: FR_040303812

PATIENT
  Age: 56 Year
  Sex: Female

DRUGS (5)
  1. ZYPREXA [Suspect]
     Indication: PARANOIA
     Dosage: 1 DSG FORM/1 DAY
     Dates: start: 20031202, end: 20031223
  2. THERALENE (ALIMEMAZINE TARTRATE) [Concomitant]
  3. ANAFRANIL [Concomitant]
  4. DEPAMIDE (VALPROMIDE) [Concomitant]
  5. CLONAZEPAM [Concomitant]

REACTIONS (1)
  - HEPATOCELLULAR DAMAGE [None]
